FAERS Safety Report 9596906 (Version 1)
Quarter: 2013Q4

REPORT INFORMATION
  Report Type: Spontaneous
  Country: US (occurrence: US)
  Receive Date: 20131004
  Receipt Date: 20131004
  Transmission Date: 20140711
  Serious: Yes (Hospitalization)
  Sender: FDA-Public Use
  Company Number: US-B.I. PHARMACEUTICALS,INC./RIDGEFIELD-2013-BI-30883BP

PATIENT
  Age: 88 Year
  Sex: Male

DRUGS (9)
  1. PRADAXA [Suspect]
     Indication: ATRIAL FIBRILLATION
     Dosage: 150 MG
     Route: 048
     Dates: start: 201105
  2. LASIX [Concomitant]
     Indication: PLEURAL EFFUSION
  3. ALLEGRA [Concomitant]
     Indication: HYPERSENSITIVITY
  4. FLONASE [Concomitant]
     Indication: HYPERSENSITIVITY
  5. MIRALAX [Concomitant]
     Indication: CONSTIPATION
  6. POTASSIUM SUPPLEMENT [Concomitant]
     Indication: MINERAL SUPPLEMENTATION
  7. METOPROLOL SUCCINATE [Concomitant]
     Indication: HYPERTENSION
  8. LISINOPRIL [Concomitant]
     Indication: HYPERTENSION
  9. TRAZADONE [Concomitant]
     Indication: INSOMNIA

REACTIONS (7)
  - Urinary tract obstruction [Recovered/Resolved]
  - Gout [Recovered/Resolved]
  - Pneumonia [Not Recovered/Not Resolved]
  - Bronchospasm [Not Recovered/Not Resolved]
  - Asthma [Not Recovered/Not Resolved]
  - Blood creatinine increased [Not Recovered/Not Resolved]
  - Periorbital contusion [Not Recovered/Not Resolved]
